FAERS Safety Report 9685076 (Version 5)
Quarter: 2014Q1

REPORT INFORMATION
  Report Type: Report from Study
  Country: US (occurrence: US)
  Receive Date: 20131113
  Receipt Date: 20140323
  Transmission Date: 20141002
  Serious: Yes (Hospitalization)
  Sender: FDA-Public Use
  Company Number: US-BRISTOL-MYERS SQUIBB COMPANY-19760198

PATIENT
  Age: 71 Year
  Sex: Male
  Weight: 74.9 kg

DRUGS (13)
  1. NIVOLUMAB [Suspect]
     Indication: METASTATIC MALIGNANT MELANOMA
     Route: 042
     Dates: start: 20130515, end: 20130722
  2. IPILIMUMAB [Suspect]
     Indication: METASTATIC MALIGNANT MELANOMA
     Route: 042
     Dates: start: 20130807
  3. DIAZEPAM [Concomitant]
  4. AMBIEN [Concomitant]
  5. MULTIVITAMIN [Concomitant]
     Dates: start: 20020101
  6. OMEGA 3 FATTY ACID [Concomitant]
     Dates: start: 20020101
  7. GLUCOSAMINE [Concomitant]
     Dates: start: 20030101
  8. HYDROCHLOROTHIAZIDE [Concomitant]
     Dates: start: 20080101
  9. VITAMIN D3 [Concomitant]
     Dates: start: 20100101
  10. EPIPEN [Concomitant]
     Dates: start: 20120425
  11. INFLIXIMAB [Concomitant]
  12. MICAFUNGIN SODIUM [Concomitant]
  13. SOLU-MEDROL [Concomitant]

REACTIONS (2)
  - Respiratory failure [Recovered/Resolved]
  - Renal failure [Recovered/Resolved]
